FAERS Safety Report 17292794 (Version 1)
Quarter: 2020Q1

REPORT INFORMATION
  Report Type: Report from Study
  Country: CZ (occurrence: CZ)
  Receive Date: 20200121
  Receipt Date: 20200121
  Transmission Date: 20200409
  Serious: Yes (Hospitalization, Other)
  Sender: FDA-Public Use
  Company Number: CZ-BAYER-2020-007309

PATIENT
  Age: 16 Year
  Sex: Female
  Weight: 56 kg

DRUGS (1)
  1. JAYDESS [Suspect]
     Active Substance: LEVONORGESTREL
     Indication: CONTRACEPTION
     Dosage: 14 MCG/24HR, CONT
     Route: 015
     Dates: start: 20190329, end: 20190906

REACTIONS (6)
  - Pregnancy with contraceptive device [Recovered/Resolved]
  - Device dislocation [Recovered/Resolved]
  - Uterine inflammation [None]
  - Device dislocation [Recovered/Resolved]
  - Device use issue [Recovered/Resolved]
  - Drug ineffective [None]

NARRATIVE: CASE EVENT DATE: 20190826
